FAERS Safety Report 15270751 (Version 1)
Quarter: 2018Q3

REPORT INFORMATION
  Report Type: Spontaneous
  Country: ZA (occurrence: ZA)
  Receive Date: 20180813
  Receipt Date: 20180813
  Transmission Date: 20181010
  Serious: Yes (Death, Hospitalization)
  Sender: FDA-Public Use
  Company Number: ZA-CELGENEUS-ZAF-20180509224

PATIENT
  Age: 82 Year
  Sex: Female
  Weight: 72 kg

DRUGS (49)
  1. MERONEM [Concomitant]
     Active Substance: MEROPENEM
     Indication: PROPHYLAXIS
     Dosage: 9 MILLIGRAM
     Route: 041
     Dates: start: 20180410
  2. DORMONOCT [Concomitant]
     Active Substance: LOPRAZOLAM
     Indication: INSOMNIA
     Dosage: 9 MILLIGRAM
     Route: 048
     Dates: start: 2017
  3. DITROPAN [Concomitant]
     Active Substance: OXYBUTYNIN CHLORIDE
     Indication: MICTURITION DISORDER
     Dosage: 9 MILLIGRAM
     Route: 048
     Dates: start: 20180504
  4. LASIX [Concomitant]
     Active Substance: FUROSEMIDE
     Indication: PROPHYLAXIS
     Dosage: 20 MILLIGRAM
     Route: 041
     Dates: start: 201804
  5. AMIODARONE [Concomitant]
     Active Substance: AMIODARONE
     Indication: PROPHYLAXIS
     Dosage: 100 MILLIGRAM
     Route: 048
     Dates: start: 20180413
  6. EMEND [Concomitant]
     Active Substance: APREPITANT
     Indication: PROPHYLAXIS OF NAUSEA AND VOMITING
     Dosage: 80 MILLIGRAM
     Route: 048
     Dates: start: 20180413
  7. AZACITIDINE. [Suspect]
     Active Substance: AZACITIDINE
     Indication: ACUTE MYELOID LEUKAEMIA
     Dosage: 75 MILLIGRAM/SQ. METER
     Route: 058
     Dates: start: 20180410, end: 20180416
  8. STILPANE [Concomitant]
     Indication: OSTEOARTHRITIS
     Dosage: 9 MILLIGRAM
     Route: 048
     Dates: start: 20180327
  9. ESCITALOPRAM [Concomitant]
     Active Substance: ESCITALOPRAM OXALATE
     Indication: DEPRESSION
     Dosage: 9 MILLIGRAM
     Route: 048
     Dates: start: 2008
  10. LACSON [Concomitant]
     Indication: CONSTIPATION
     Dosage: 30 MILLILITER
     Route: 048
     Dates: start: 20180404
  11. FOLATE [Concomitant]
     Active Substance: FOLATE SODIUM
     Indication: PROPHYLAXIS
     Dosage: 5 MILLIGRAM
     Route: 048
     Dates: start: 20180413
  12. VENETOCLAX. [Concomitant]
     Active Substance: VENETOCLAX
     Dosage: 20 MILLIGRAM
     Route: 048
     Dates: start: 20180411, end: 20180411
  13. DS 24 MULTI VITAMIN [Concomitant]
     Indication: SUPPLEMENTATION THERAPY
     Dosage: 1 CAPSULE
     Route: 048
     Dates: start: 20180327
  14. PAROEX [Concomitant]
     Active Substance: CHLORHEXIDINE GLUCONATE
     Indication: PROPHYLAXIS
     Dosage: 30 MILLILITER
     Route: 002
     Dates: start: 20180327
  15. AMLOC [Concomitant]
     Indication: HYPERTENSION
     Dosage: 9 MILLIGRAM
     Route: 048
     Dates: start: 20180328
  16. ATIVAN [Concomitant]
     Active Substance: LORAZEPAM
     Indication: ANXIETY
     Dosage: 9 MILLIGRAM
     Route: 060
     Dates: start: 20180331
  17. PURBAC [Concomitant]
     Active Substance: SULFAMETHOXAZOLE\TRIMETHOPRIM
     Indication: INFECTION PROPHYLAXIS
     Dosage: 9 MILLIGRAM
     Route: 048
     Dates: start: 20180328
  18. VENETOCLAX. [Concomitant]
     Active Substance: VENETOCLAX
     Indication: ACUTE MYELOID LEUKAEMIA
     Dosage: 10 MILLIGRAM
     Route: 048
     Dates: start: 20180410, end: 20180410
  19. VENETOCLAX. [Concomitant]
     Active Substance: VENETOCLAX
     Dosage: 50 MILLIGRAM
     Route: 048
     Dates: start: 20180412, end: 20180507
  20. BACTROBAN [Concomitant]
     Active Substance: MUPIROCIN\MUPIROCIN CALCIUM
     Indication: ULCER
     Dosage: 9 MILLIGRAM
     Route: 061
     Dates: start: 20180402
  21. MYCAMINE [Concomitant]
     Active Substance: MICAFUNGIN SODIUM
     Indication: PNEUMONIA KLEBSIELLA
  22. MYCAMINE [Concomitant]
     Active Substance: MICAFUNGIN SODIUM
     Indication: PNEUMONIA
  23. ZYVOXID [Concomitant]
     Active Substance: LINEZOLID
     Indication: PROPHYLAXIS
     Dosage: 9 MILLIGRAM
     Route: 041
     Dates: start: 20180410
  24. MOVICOL [Concomitant]
     Active Substance: POLYETHYLENE GLYCOL 3350\POTASSIUM CHLORIDE\SODIUM BICARBONATE\SODIUM CHLORIDE
     Indication: CONSTIPATION
     Dosage: SACHET
     Route: 048
     Dates: start: 20180404
  25. PERSIVATE [Concomitant]
     Active Substance: BETAMETHASONE VALERATE
     Indication: PROPHYLAXIS
     Route: 061
     Dates: start: 20180413
  26. KYTRIL [Concomitant]
     Active Substance: GRANISETRON HYDROCHLORIDE
     Indication: PROPHYLAXIS OF NAUSEA AND VOMITING
     Dosage: 3 MILLIGRAM
     Route: 041
     Dates: start: 20180413
  27. ALDACTONE [Concomitant]
     Active Substance: SPIRONOLACTONE
     Indication: PROPHYLAXIS
     Dosage: 50 MILLIGRAM
     Route: 048
     Dates: start: 20180413
  28. SODIUM CHLORIDE. [Concomitant]
     Active Substance: SODIUM CHLORIDE
     Indication: PROPHYLAXIS
     Route: 041
     Dates: start: 20180327
  29. EPILIM [Concomitant]
     Active Substance: VALPROATE SODIUM
     Indication: GENERALISED TONIC-CLONIC SEIZURE
     Dosage: 9 MILLIGRAM
     Route: 048
     Dates: start: 2016
  30. MERONEM [Concomitant]
     Active Substance: MEROPENEM
     Indication: PNEUMONIA KLEBSIELLA
     Route: 041
  31. MERONEM [Concomitant]
     Active Substance: MEROPENEM
     Indication: PNEUMONIA
  32. OMEZ [Concomitant]
     Active Substance: OMEPRAZOLE
     Indication: PROPHYLAXIS
     Dosage: 9 MILLIGRAM
     Route: 048
     Dates: start: 2017
  33. PIASCLEDINE [Concomitant]
     Active Substance: AVOCADO OIL\SOYBEAN OIL
     Indication: OSTEOARTHRITIS
     Dosage: 9 MILLIGRAM
     Route: 048
     Dates: start: 2013
  34. DAKTARIN [Concomitant]
     Active Substance: MICONAZOLE NITRATE
     Indication: PROPHYLAXIS
     Dosage: 3 DOSAGE FORMS
     Route: 002
     Dates: start: 20180413
  35. OXYBUTYNIN. [Concomitant]
     Active Substance: OXYBUTYNIN CHLORIDE
     Indication: URINARY INCONTINENCE
     Dosage: 5 MILLIGRAM
     Route: 048
     Dates: start: 20180413
  36. ROBAXIN [Concomitant]
     Active Substance: METHOCARBAMOL
     Indication: MUSCULOSKELETAL PAIN
     Dosage: 1500 MILLIGRAM
     Route: 048
     Dates: start: 20180420
  37. CAVILON BARRIER [Concomitant]
     Indication: PROPHYLAXIS
     Dosage: 9 MILLIGRAM
     Route: 061
     Dates: start: 20180330
  38. ZELITREX [Concomitant]
     Active Substance: VALACYCLOVIR HYDROCHLORIDE
     Indication: INFECTION PROPHYLAXIS
     Dosage: 9 MILLIGRAM
     Route: 048
     Dates: start: 20180328
  39. MYCAMINE [Concomitant]
     Active Substance: MICAFUNGIN SODIUM
     Indication: INFECTION PROPHYLAXIS
     Dosage: 9 MILLIGRAM
     Route: 041
     Dates: start: 20180328
  40. LEVOFLOXAXIN [Concomitant]
     Active Substance: LEVOFLOXACIN
     Indication: INFECTION PROPHYLAXIS
     Dosage: 9 MILLIGRAM
     Route: 048
     Dates: start: 20180419
  41. GASTROPECT [Concomitant]
     Indication: DIARRHOEA
     Route: 048
     Dates: start: 20180413
  42. ALPROZOLAM [Concomitant]
     Active Substance: ALPRAZOLAM
     Indication: ANXIETY
     Dosage: .5 MILLIGRAM
     Route: 048
     Dates: start: 20180327
  43. 3M CAVILON ANTIFUNGAL [Concomitant]
     Active Substance: MICONAZOLE NITRATE
     Indication: PROPHYLAXIS
     Dosage: 9 MILLIGRAM
     Route: 061
     Dates: start: 20180330
  44. ZITHROMAX [Concomitant]
     Active Substance: AZITHROMYCIN DIHYDRATE
     Indication: PROPHYLAXIS
     Dosage: 9 MILLIGRAM
     Route: 048
     Dates: start: 20180410
  45. ALLOPURINOL. [Concomitant]
     Active Substance: ALLOPURINOL
     Indication: PROPHYLAXIS
     Dosage: 200 MILLIGRAM
     Route: 048
     Dates: start: 20180404
  46. MAXOLON [Concomitant]
     Active Substance: METOCLOPRAMIDE HYDROCHLORIDE
     Indication: PROPHYLAXIS
     Dosage: 30 MILLIGRAM
     Route: 041
     Dates: start: 20180327
  47. CEFEPIME [Concomitant]
     Active Substance: CEFEPIME HYDROCHLORIDE
     Indication: INFECTION PROPHYLAXIS
     Dosage: 9 MILLIGRAM
     Route: 041
     Dates: start: 20180328
  48. EUTHYROX [Concomitant]
     Active Substance: LEVOTHYROXINE SODIUM
     Indication: HYPOTHYROIDISM
     Dosage: 9 MILLIGRAM
     Route: 048
     Dates: start: 197806
  49. THIAMINE [Concomitant]
     Active Substance: THIAMINE
     Indication: PROPHYLAXIS
     Dosage: 100 MILLIGRAM
     Route: 048
     Dates: start: 20180413

REACTIONS (2)
  - Pneumonia klebsiella [Fatal]
  - Pneumonia [Unknown]

NARRATIVE: CASE EVENT DATE: 20180427
